FAERS Safety Report 13775677 (Version 1)
Quarter: 2017Q3

REPORT INFORMATION
  Report Type: Spontaneous
  Country: IT (occurrence: IT)
  Receive Date: 20170720
  Receipt Date: 20170720
  Transmission Date: 20171127
  Serious: Yes (Hospitalization)
  Sender: FDA-Public Use
  Company Number: IT-PFIZER INC-1713708

PATIENT
  Age: 55 Year
  Sex: Female

DRUGS (5)
  1. PACLITAXEL. [Concomitant]
     Active Substance: PACLITAXEL
     Indication: OVARIAN CANCER
     Dosage: 292 MG, UNK
     Route: 041
     Dates: start: 20130408, end: 20130507
  2. RANITIDINE. [Concomitant]
     Active Substance: RANITIDINE
     Indication: PROPHYLAXIS AGAINST GASTROINTESTINAL ULCER
     Dosage: 100 MG, UNK
     Route: 041
     Dates: start: 20130408, end: 20130507
  3. CARBOPLATIN. [Suspect]
     Active Substance: CARBOPLATIN
     Indication: OVARIAN CANCER
     Dosage: 526 MG, CYCLICAL
     Route: 041
     Dates: start: 20130408, end: 20130507
  4. URBASON /00049601/ [Concomitant]
     Active Substance: METHYLPREDNISOLONE
     Indication: ANAPHYLAXIS PROPHYLAXIS
     Dosage: 40 MG, UNK
     Route: 041
     Dates: start: 20130408, end: 20130507
  5. TRIMETON [Concomitant]
     Active Substance: CHLORPHENIRAMINE MALEATE
     Indication: ANAPHYLAXIS PROPHYLAXIS
     Dosage: 10 MG, UNK
     Route: 041
     Dates: start: 20130408, end: 20130507

REACTIONS (5)
  - Abdominal pain [Recovered/Resolved]
  - Dyspnoea [Recovered/Resolved]
  - Back pain [Recovered/Resolved]
  - Hyperhidrosis [Recovered/Resolved]
  - Rash [Recovered/Resolved]

NARRATIVE: CASE EVENT DATE: 20130507
